FAERS Safety Report 17412552 (Version 2)
Quarter: 2020Q1

REPORT INFORMATION
  Report Type: Spontaneous
  Country: AT (occurrence: AT)
  Receive Date: 20200213
  Receipt Date: 20200219
  Transmission Date: 20200409
  Serious: Yes (Life-Threatening)
  Sender: FDA-Public Use
  Company Number: AT-TEVA-2020-AT-1184624

PATIENT
  Age: 65 Year
  Sex: Male

DRUGS (6)
  1. ZOFRAN 4 MG - AMPULLEN [Concomitant]
     Indication: PREMEDICATION
     Dosage: 4 MG
     Route: 042
  2. JOPAMIRO 300 MG J/ML [Concomitant]
     Dosage: 100 ML
     Route: 042
  3. DOXORUBICIN [Suspect]
     Active Substance: DOXORUBICIN
     Indication: THERAPEUTIC EMBOLISATION
     Dosage: 50 MG INTRAARTERIELL; 1X
     Route: 013
     Dates: start: 20200122
  4. XYLANAEST 1% 10ML [Concomitant]
     Indication: LOCAL ANAESTHESIA
     Dosage: 10 ML
  5. CEFAZOLIN [Concomitant]
     Active Substance: CEFAZOLIN
     Indication: PREMEDICATION
     Dosage: 2 MG
     Route: 042
  6. TRADOLAN 100 MG - AMPULLEN [Concomitant]
     Indication: PREMEDICATION
     Dosage: 100 MG
     Route: 042

REACTIONS (3)
  - Dyspnoea [Recovered/Resolved]
  - Anaphylactic reaction [Recovered/Resolved]
  - Tachycardia [Recovered/Resolved]

NARRATIVE: CASE EVENT DATE: 20200122
